FAERS Safety Report 7910595-9 (Version None)
Quarter: 2011Q4

REPORT INFORMATION
  Report Type: 
  Country: None (occurrence: None)
  Receive Date: 20111111
  Receipt Date: 20111108
  Transmission Date: 20120403
  Serious: Yes (Hospitalization)
  Sender: FDA-Public Use
  Company Number: PHHO2011FR018772

PATIENT
  Sex: Male
  Weight: 71.3 kg

DRUGS (5)
  1. PERINDOPRIL ERBUMINE [Concomitant]
     Indication: HYPERTENSION
     Dosage: 2.5 MG, QD
     Route: 048
     Dates: start: 19870101
  2. ATORVASTATIN CALCIUM [Concomitant]
     Indication: HYPERCHOLESTEROLAEMIA
     Dosage: 40 MG, UNK
     Route: 048
     Dates: start: 20070101
  3. ACETAMINOPHEN AND TRAMADOL HCL [Concomitant]
     Indication: ABDOMINAL PAIN
     Dosage: 1 DF, PRN
     Route: 048
     Dates: start: 20100701, end: 20101201
  4. EVEROLIMUS [Suspect]
     Indication: METASTATIC RENAL CELL CARCINOMA
     Dosage: 10 MG, UNK
     Dates: start: 20101116, end: 20110119
  5. RIVATRIL [Concomitant]
     Indication: INSOMNIA
     Dosage: 0.5 MG, QD
     Route: 048
     Dates: start: 19570101

REACTIONS (1)
  - ERYSIPELAS [None]
